FAERS Safety Report 11830340 (Version 3)
Quarter: 2015Q4

REPORT INFORMATION
  Report Type: Spontaneous
  Country: US (occurrence: US)
  Receive Date: 20151214
  Receipt Date: 20151214
  Transmission Date: 20160305
  Serious: Yes (Disabling, Other)
  Sender: FDA-Public Use
  Company Number: US-JNJFOC-20151107965

PATIENT
  Age: 58 Year
  Sex: Female
  Weight: 58.97 kg

DRUGS (2)
  1. IMODIUM [Concomitant]
     Active Substance: LOPERAMIDE HYDROCHLORIDE
     Route: 065
  2. LEVAQUIN [Suspect]
     Active Substance: LEVOFLOXACIN
     Indication: SINUSITIS
     Dosage: NDC# 50458-0930-20
     Route: 048
     Dates: start: 20110103, end: 20110107

REACTIONS (14)
  - Abasia [Unknown]
  - Tinnitus [Unknown]
  - Pain in extremity [Unknown]
  - Asthenia [Unknown]
  - Immune system disorder [Unknown]
  - Tendon pain [Unknown]
  - Burning sensation [Unknown]
  - Acne [Unknown]
  - Arthralgia [Unknown]
  - Activities of daily living impaired [Unknown]
  - Grip strength decreased [Unknown]
  - Vision blurred [Unknown]
  - Muscular weakness [Unknown]
  - Irritable bowel syndrome [Unknown]
